FAERS Safety Report 14665933 (Version 6)
Quarter: 2018Q4

REPORT INFORMATION
  Report Type: Spontaneous
  Country: GR (occurrence: GR)
  Receive Date: 20180321
  Receipt Date: 20181005
  Transmission Date: 20190204
  Serious: Yes (Hospitalization, Other)
  Sender: FDA-Public Use
  Company Number: GR-MYLANLABS-2018M1016488

PATIENT
  Age: 72 Year

DRUGS (10)
  1. IRBESARTAN. [Suspect]
     Active Substance: IRBESARTAN
     Indication: CARDIAC FAILURE
     Dosage: 300 MG, QD
  2. CARVEDILOL. [Suspect]
     Active Substance: CARVEDILOL
     Dosage: 6.25 MG, 2X/DAY
     Route: 065
  3. AMILORIDE [Suspect]
     Active Substance: AMILORIDE
     Indication: CARDIAC FAILURE
     Dosage: 40 MG (FUROSEMIDE)+5 MG (AMILORIDE), BID
  4. DICLOFENAC [Suspect]
     Active Substance: DICLOFENAC
     Indication: CARDIAC FAILURE
     Dosage: UNK
     Route: 065
  5. CARVEDILOL. [Suspect]
     Active Substance: CARVEDILOL
     Indication: CARDIAC FAILURE
     Dosage: 6.25 MG, BID
  6. IRBESARTAN. [Suspect]
     Active Substance: IRBESARTAN
     Dosage: 300 MG, 1X/DAY
     Route: 065
  7. AMILORIDE W/FUROSEMIDE [Suspect]
     Active Substance: AMILORIDE\FUROSEMIDE
     Dosage: 10 MG AMLODIPINE + 20 MG OLMESARTAN
  8. DICLOFENAC [Suspect]
     Active Substance: DICLOFENAC
     Dosage: UNK
     Route: 065
  9. AMILORIDE W/FUROSEMIDE [Suspect]
     Active Substance: AMILORIDE\FUROSEMIDE
     Indication: CARDIAC FAILURE
     Dosage: 1 DF, 2X/DAY (40+5) MG
  10. CARVEDILOL. [Suspect]
     Active Substance: CARVEDILOL
     Dosage: 6.5 MG, BID

REACTIONS (13)
  - Product administration error [Unknown]
  - Muscular weakness [Recovered/Resolved]
  - Electrocardiogram T wave abnormal [Unknown]
  - Hyponatraemia [Recovered/Resolved]
  - Product use issue [Recovered/Resolved]
  - Product use in unapproved indication [Recovered/Resolved]
  - Orthostatic hypotension [Recovered/Resolved]
  - Blood sodium increased [Unknown]
  - Renal impairment [Recovered/Resolved]
  - Blood urea increased [Unknown]
  - Hyperkalaemia [Recovered/Resolved]
  - Blood creatinine increased [Unknown]
  - Blood potassium increased [Recovered/Resolved]
